FAERS Safety Report 5167476-6 (Version None)
Quarter: 2006Q4

REPORT INFORMATION
  Report Type: 
  Country: None (occurrence: None)
  Receive Date: 20061130
  Receipt Date: 20061115
  Transmission Date: 20070319
  Serious: Yes (Other)
  Sender: FDA-Public Use
  Company Number: 14403

PATIENT
  Age: 76 Year
  Sex: Male
  Weight: 82 kg

DRUGS (11)
  1. DACARBAZINE [Suspect]
     Indication: MALIGNANT MELANOMA STAGE IV
     Dosage: 2000 MG IV
     Route: 042
     Dates: start: 20060616
  2. BOSENTIN 500 MG BID OR PLACBO (CODE NOT BROKEN) [Suspect]
     Indication: MALIGNANT MELANOMA STAGE IV
     Dosage: 500 MG BID PO
     Route: 048
     Dates: start: 20060616
  3. ASPIRIN [Concomitant]
  4. PERINDOPRIL ERBUMINE [Concomitant]
  5. SIMVASTATIN [Concomitant]
  6. ESOMEPRAZOLE MAGNESIUM [Concomitant]
  7. LEVOTHYROXINE SODIUM [Concomitant]
  8. TEMAZEPAM [Concomitant]
  9. TIMOLOL MALEATE [Concomitant]
  10. LANTANOPROST [Concomitant]
  11. TRAMADOL HCL [Concomitant]

REACTIONS (4)
  - BLOOD CULTURE POSITIVE [None]
  - LOWER RESPIRATORY TRACT INFECTION [None]
  - PLATELET COUNT INCREASED [None]
  - STAPHYLOCOCCAL INFECTION [None]
